FAERS Safety Report 7361894-3 (Version None)
Quarter: 2011Q1

REPORT INFORMATION
  Report Type: 
  Country: None (occurrence: None)
  Receive Date: 20110318
  Receipt Date: 20110311
  Transmission Date: 20110831
  Serious: Yes (Life-Threatening)
  Sender: FDA-Public Use
  Company Number: JP-PFIZER INC-2011054986

PATIENT
  Age: 73 Year
  Sex: Male
  Weight: 52 kg

DRUGS (17)
  1. NU LOTAN [Concomitant]
     Dosage: UNK
     Route: 048
     Dates: end: 20100523
  2. NORADRENALINE [Concomitant]
     Dosage: UNK
     Route: 042
     Dates: start: 20100524, end: 20100526
  3. SILDENAFIL CITRATE [Suspect]
     Indication: PULMONARY HYPERTENSION
     Dosage: 20 MG, 3X/DAY
     Dates: start: 20100514, end: 20100524
  4. WARFARIN [Concomitant]
     Dosage: UNK
     Route: 048
  5. LAFUTIDINE [Concomitant]
     Indication: PREMEDICATION
     Dosage: UNK
     Dates: start: 20100524, end: 20100524
  6. HANP [Concomitant]
     Dosage: UNK
     Route: 042
     Dates: start: 20100524, end: 20100528
  7. DIGOSIN [Concomitant]
     Dosage: UNK
     Route: 048
  8. ELASPOL [Concomitant]
     Dosage: UNK
     Route: 042
     Dates: start: 20100525, end: 20100526
  9. UNASYN [Concomitant]
     Indication: INFECTION PROPHYLAXIS
     Dosage: UNK
     Route: 042
     Dates: start: 20100524, end: 20100528
  10. HEPARIN [Concomitant]
     Indication: ATRIAL FIBRILLATION
     Dosage: UNK
     Route: 042
     Dates: start: 20100514, end: 20100524
  11. DORAL [Concomitant]
     Dosage: UNK
     Route: 048
     Dates: start: 20100524, end: 20100524
  12. ALDACTONE [Concomitant]
     Indication: POLYURIA
     Dosage: UNK
     Route: 048
     Dates: start: 20100527
  13. LACTEC [Concomitant]
     Dosage: UNK
     Route: 042
     Dates: start: 20100524, end: 20100528
  14. LASIX [Concomitant]
     Indication: POLYURIA
     Dosage: UNK
     Route: 048
  15. OMEPRAL [Concomitant]
     Dosage: UNK
     Route: 048
     Dates: start: 20100527
  16. ASPIRIN [Concomitant]
     Dosage: UNK
     Route: 048
  17. INOVAN [Concomitant]
     Dosage: UNK
     Route: 042
     Dates: start: 20100524, end: 20100528

REACTIONS (3)
  - SHOCK HAEMORRHAGIC [None]
  - RESPIRATORY FAILURE [None]
  - CIRCULATORY COLLAPSE [None]
